FAERS Safety Report 11931842 (Version 2)
Quarter: 2016Q1

REPORT INFORMATION
  Report Type: Report from Study
  Country: US (occurrence: US)
  Receive Date: 20160120
  Receipt Date: 20160128
  Transmission Date: 20160526
  Serious: Yes (Hospitalization)
  Sender: FDA-Public Use
  Company Number: US-GILEAD-2016-0192223

PATIENT
  Age: 60 Year
  Sex: Male

DRUGS (1)
  1. LEDIPASVIR/SOFOSBUVIR [Suspect]
     Active Substance: LEDIPASVIR\SOFOSBUVIR
     Indication: CHRONIC HEPATITIS C
     Dosage: 1 DF, UNK
     Route: 048
     Dates: start: 20151111

REACTIONS (18)
  - Lymphadenopathy [Unknown]
  - Anxiety [Unknown]
  - Feeling abnormal [Unknown]
  - Abdominal distension [Unknown]
  - Confusional state [Unknown]
  - Head injury [Unknown]
  - Treatment noncompliance [Unknown]
  - Gastrooesophageal reflux disease [Unknown]
  - Infection [Unknown]
  - Abnormal dreams [Unknown]
  - Eating disorder [Unknown]
  - Weight increased [Unknown]
  - Headache [Unknown]
  - Hernia [Unknown]
  - Abdominal pain upper [Unknown]
  - Insomnia [Unknown]
  - Abdominal discomfort [Unknown]
  - Nausea [Unknown]
